FAERS Safety Report 24415712 (Version 2)
Quarter: 2024Q4

REPORT INFORMATION
  Report Type: Spontaneous
  Country: FR (occurrence: FR)
  Receive Date: 20241009
  Receipt Date: 20241120
  Transmission Date: 20250115
  Serious: Yes (Other)
  Sender: AUROBINDO
  Company Number: FR-AFSSAPS-AN2024001311

PATIENT
  Age: 74 Year

DRUGS (4)
  1. LIDOCAINE [Suspect]
     Active Substance: LIDOCAINE
     Indication: Anaesthesia
     Dosage: 100 MILLIGRAM (1 X TOTAL)
     Route: 051
     Dates: start: 20240917, end: 20240917
  2. LIDOCAINE [Suspect]
     Active Substance: LIDOCAINE
     Dosage: 100 MILLIGRAM (75 MILLIGRAM, 1 DOSAGE TOTAL)
     Route: 051
  3. ROPIVACAINE HYDROCHLORIDE [Suspect]
     Active Substance: ROPIVACAINE HYDROCHLORIDE
     Indication: Anaesthesia
     Dosage: 75 MILLIGRAM, 1 X TOTAL
     Route: 051
     Dates: start: 20240917, end: 20240917
  4. ROPIVACAINE HYDROCHLORIDE [Suspect]
     Active Substance: ROPIVACAINE HYDROCHLORIDE
     Dosage: 75 MILLIGRAM, 1 DOSAGE TOTAL
     Route: 051

REACTIONS (4)
  - Chest pain [Recovered/Resolved]
  - Paraesthesia oral [Recovered/Resolved]
  - Clonus [Recovered/Resolved]
  - Dyspnoea [Recovered/Resolved]

NARRATIVE: CASE EVENT DATE: 20240917
